FAERS Safety Report 8284174 (Version 3)
Quarter: 2012Q4

REPORT INFORMATION
  Report Type: 
  Country: US (occurrence: US)
  Receive Date: 20111212
  Receipt Date: 20121214
  Transmission Date: 20130627
  Serious: Yes (Death, Hospitalization)
  Sender: FDA-Public Use
  Company Number: US-GLAXOSMITHKLINE-A0902627A

PATIENT
  Age: 53 Year
  Sex: Male
  Weight: 98.2 kg

DRUGS (1)
  1. AVANDIA [Suspect]
     Indication: DIABETES MELLITUS
     Dates: start: 200001, end: 200805

REACTIONS (2)
  - Myocardial infarction [Unknown]
  - Arteriosclerosis [Fatal]
